FAERS Safety Report 20075472 (Version 1)
Quarter: 2021Q4

REPORT INFORMATION
  Report Type: Spontaneous
  Country: US (occurrence: None)
  Receive Date: 20211116
  Receipt Date: 20211116
  Transmission Date: 20220303
  Serious: Yes (Disabling)
  Sender: FDA-Public Use
  Company Number: None

PATIENT
  Age: 36 Year
  Sex: Male
  Weight: 58.5 kg

DRUGS (1)
  1. CIPRO [Suspect]
     Active Substance: CIPROFLOXACIN HYDROCHLORIDE
     Indication: Gastritis
     Dosage: OTHER QUANTITY : 1 TABLET(S);?
     Route: 048
     Dates: start: 20211009, end: 20211009

REACTIONS (13)
  - Arthralgia [None]
  - Tendon pain [None]
  - Tinnitus [None]
  - Head discomfort [None]
  - Headache [None]
  - Vision blurred [None]
  - Panic attack [None]
  - Hypotension [None]
  - Constipation [None]
  - Insomnia [None]
  - Weight decreased [None]
  - Pyrexia [None]
  - Migraine [None]

NARRATIVE: CASE EVENT DATE: 20211009
